FAERS Safety Report 9984044 (Version 2)
Quarter: 2015Q1

REPORT INFORMATION
  Report Type: Report from Study
  Country: US (occurrence: US)
  Receive Date: 20140307
  Receipt Date: 20150216
  Transmission Date: 20150721
  Serious: No
  Sender: FDA-Public Use
  Company Number: US-ABBVIE-13P-163-1182294-00

PATIENT
  Age: 48 Year
  Sex: Female

DRUGS (15)
  1. MELATONIN [Concomitant]
     Active Substance: MELATONIN
     Indication: INSOMNIA
     Dosage: AT BEDTIME
  2. IBUPROFEN. [Concomitant]
     Active Substance: IBUPROFEN
     Indication: PAIN
  3. MULTIVITAMIN [Concomitant]
     Active Substance: VITAMINS
     Indication: PRODUCT USED FOR UNKNOWN INDICATION
     Dosage: TWO
  4. HUMIRA [Suspect]
     Active Substance: ADALIMUMAB
     Indication: PSORIATIC ARTHROPATHY
     Dates: start: 20131004, end: 201312
  5. METHOTREXATE [Concomitant]
     Active Substance: METHOTREXATE
     Indication: PSORIATIC ARTHROPATHY
     Dosage: 4 TABS IN MORNING AN 4 TABS IN EVENING
  6. TYLENOL ARTHRITIS PAIN [Concomitant]
     Active Substance: ACETAMINOPHEN
     Indication: PAIN
  7. LASIX [Concomitant]
     Active Substance: FUROSEMIDE
     Indication: SWELLING
     Dosage: MONDAY, WEDNESDAY AND FRIDAYS
  8. ASPIRIN. [Concomitant]
     Active Substance: ASPIRIN
     Indication: PRODUCT USED FOR UNKNOWN INDICATION
  9. VITAMIN C [Concomitant]
     Active Substance: ASCORBIC ACID
     Indication: NASOPHARYNGITIS
     Dosage: IN WINTER
  10. TAMBOCOR [Concomitant]
     Active Substance: FLECAINIDE ACETATE
     Indication: HEART RATE INCREASED
  11. LASIX [Concomitant]
     Active Substance: FUROSEMIDE
     Dosage: TUESDAY, THURSDAY , SATURDAY AND SUNDAYS
  12. HUMIRA [Suspect]
     Active Substance: ADALIMUMAB
     Dates: start: 20131213
  13. CALCIUM + VITAMIN D [Concomitant]
     Active Substance: CALCIUM\VITAMIN D
     Indication: PRODUCT USED FOR UNKNOWN INDICATION
  14. LEXAPRO [Concomitant]
     Active Substance: ESCITALOPRAM OXALATE
     Indication: INSOMNIA
     Dosage: AT BEDTIME
  15. VITAMIN C [Concomitant]
     Active Substance: ASCORBIC ACID
     Indication: INFLUENZA
     Dosage: THE REST OF THE YEAR

REACTIONS (5)
  - Rash [Recovered/Resolved]
  - Fatigue [Unknown]
  - Arthritis [Recovered/Resolved]
  - Fatigue [Recovered/Resolved]
  - Drug effect decreased [Recovered/Resolved]

NARRATIVE: CASE EVENT DATE: 201311
